FAERS Safety Report 19562528 (Version 1)
Quarter: 2021Q3

REPORT INFORMATION
  Report Type: Spontaneous
  Country: US (occurrence: US)
  Receive Date: 20210714
  Receipt Date: 20210714
  Transmission Date: 20211014
  Serious: Yes (Other)
  Sender: FDA-Public Use
  Company Number: US-OXFORD PHARMACEUTICALS, LLC-2113828

PATIENT
  Age: 9 Year
  Sex: Female

DRUGS (8)
  1. BACLOFEN. [Suspect]
     Active Substance: BACLOFEN
     Indication: MUSCLE SPASTICITY
     Route: 037
  2. MELATONIN [Concomitant]
     Active Substance: MELATONIN
  3. CLONAZEPAM. [Concomitant]
     Active Substance: CLONAZEPAM
  4. ALBUTEROL. [Concomitant]
     Active Substance: ALBUTEROL
  5. TRIHEXYPHENIDYL HYDROCHLORIDE. [Concomitant]
     Active Substance: TRIHEXYPHENIDYL HYDROCHLORIDE
  6. DIAZEPAM. [Concomitant]
     Active Substance: DIAZEPAM
  7. LEVETIRACETAM. [Concomitant]
     Active Substance: LEVETIRACETAM
  8. OXYCODONE. [Concomitant]
     Active Substance: OXYCODONE HYDROCHLORIDE

REACTIONS (2)
  - Sleep apnoea syndrome [Recovered/Resolved]
  - Hypoxia [Recovered/Resolved]
